FAERS Safety Report 10689341 (Version 2)
Quarter: 2015Q1

REPORT INFORMATION
  Report Type: Report from Study
  Country: US (occurrence: US)
  Receive Date: 20150105
  Receipt Date: 20150116
  Transmission Date: 20150720
  Serious: Yes (Death)
  Sender: FDA-Public Use
  Company Number: US-AMGEN-USACT2015000175

PATIENT
  Age: 45 Year
  Sex: Male
  Weight: 58.9 kg

DRUGS (11)
  1. ROMIPLOSTIM [Suspect]
     Active Substance: ROMIPLOSTIM
     Indication: THROMBOCYTOPENIA
     Dosage: 300 MUG, QWK
     Route: 058
     Dates: start: 20140618, end: 20141224
  2. FOSAPREPITANT [Concomitant]
     Active Substance: FOSAPREPITANT
     Dosage: 20 MG, UNK
     Dates: start: 20141104
  3. LEUCOVORIN                         /00566701/ [Concomitant]
     Active Substance: LEUCOVORIN
     Dosage: 180 MG, UNK
     Dates: start: 20141104
  4. DEXAMETHASONE. [Concomitant]
     Active Substance: DEXAMETHASONE
     Dosage: 20 MG, UNK
     Dates: start: 20141104
  5. PEGFILGRASTIM [Concomitant]
     Active Substance: PEGFILGRASTIM
     Dosage: 6 MG, UNK
     Route: 058
     Dates: start: 20141104
  6. HYDROXYZINE [Concomitant]
     Active Substance: HYDROXYZINE\HYDROXYZINE HYDROCHLORIDE
     Dosage: 25 MG, UNK
     Dates: start: 20141104
  7. FLUTICASONE W/SALMETEROL [Concomitant]
     Active Substance: FLUTICASONE PROPIONATE\SALMETEROL XINAFOATE
     Dosage: 250 MCG/50MCG
     Dates: start: 20141117
  8. FLUOROURACIL. [Concomitant]
     Active Substance: FLUOROURACIL
     Dosage: 2100 MG, UNK
     Route: 042
     Dates: start: 20141104
  9. FAMOTIDINE. [Concomitant]
     Active Substance: FAMOTIDINE
     Dosage: 20 MG, UNK
     Dates: start: 20141104
  10. PALONOSETRON [Concomitant]
     Active Substance: PALONOSETRON
     Dosage: 250 MUG, UNK
     Dates: start: 20141104
  11. OXALIPLATIN. [Concomitant]
     Active Substance: OXALIPLATIN
     Dosage: 130 MG, UNK
     Dates: start: 20141104

REACTIONS (1)
  - Cardiac arrest [Fatal]

NARRATIVE: CASE EVENT DATE: 20141229
